FAERS Safety Report 21102198 (Version 7)
Quarter: 2023Q1

REPORT INFORMATION
  Report Type: Spontaneous
  Country: US (occurrence: US)
  Receive Date: 20220719
  Receipt Date: 20230303
  Transmission Date: 20230418
  Serious: Yes (Other)
  Sender: FDA-Public Use
  Company Number: US-PFIZER INC-PV202200024119

PATIENT
  Age: 78 Year
  Sex: Female

DRUGS (1)
  1. IBRANCE [Suspect]
     Active Substance: PALBOCICLIB
     Indication: Breast cancer female
     Dosage: 100 MG, CYCLIC (ON DAYS 1-21 OF 28-DAY CYCLE, WHOLE WITH WATER, WITH/ WITHOUT FOOD, SAME EACH DAY)
     Route: 048

REACTIONS (1)
  - Neutropenia [Not Recovered/Not Resolved]
